FAERS Safety Report 15930813 (Version 2)
Quarter: 2022Q1

REPORT INFORMATION
  Report Type: Spontaneous
  Country: DE (occurrence: DE)
  Receive Date: 20190207
  Receipt Date: 20220107
  Transmission Date: 20220423
  Serious: Yes (Hospitalization)
  Sender: FDA-Public Use
  Company Number: DE-AUROBINDO-AUR-APL-2018-049537

PATIENT
  Age: 63 Year
  Sex: Female
  Weight: 73 kg

DRUGS (12)
  1. OXALIPLATIN [Suspect]
     Active Substance: OXALIPLATIN
     Indication: Colorectal cancer metastatic
     Dosage: 150 MILLIGRAM, CYCLICAL
     Route: 042
     Dates: start: 20180814, end: 20180814
  2. OXALIPLATIN [Suspect]
     Active Substance: OXALIPLATIN
     Indication: Rectal cancer
     Dosage: 150 MILLIGRAM, CYCLICAL
     Route: 042
     Dates: start: 20180911
  3. LEUCOVORIN [Suspect]
     Active Substance: LEUCOVORIN
     Indication: Colorectal cancer metastatic
     Dosage: 620 MILLIGRAM, CYCLICAL
     Route: 042
     Dates: start: 20180814
  4. LEUCOVORIN [Suspect]
     Active Substance: LEUCOVORIN
     Indication: Rectal cancer
     Dosage: 620 MILLIGRAM, CYCLICAL
     Route: 042
     Dates: start: 20180911
  5. AFLIBERCEPT [Suspect]
     Active Substance: AFLIBERCEPT
     Indication: Colorectal cancer metastatic
     Dosage: 290 MILLIGRAM, CYCLICAL
     Route: 042
     Dates: start: 20180814, end: 20180814
  6. AFLIBERCEPT [Suspect]
     Active Substance: AFLIBERCEPT
     Indication: Rectal cancer
     Dosage: 290 MILLIGRAM, CYCLICAL
     Route: 042
     Dates: start: 20180911, end: 20180911
  7. FLUOROURACIL [Suspect]
     Active Substance: FLUOROURACIL
     Indication: Colorectal cancer metastatic
     Dosage: 4940 MILLIGRAM, CYCLICAL
     Route: 042
     Dates: start: 20180814, end: 20180814
  8. FLUOROURACIL [Suspect]
     Active Substance: FLUOROURACIL
     Indication: Rectal cancer
     Dosage: 4940 MILLIGRAM, CYCLICAL
     Route: 042
     Dates: start: 20180913
  9. ZENTRAGRESS [Concomitant]
     Indication: Product used for unknown indication
     Dosage: UNK UNK, ONCE A DAY
     Route: 065
     Dates: start: 20180911
  10. GRANISETRON [Concomitant]
     Active Substance: GRANISETRON
     Indication: Product used for unknown indication
     Dosage: 1 MILLIGRAM, CYCLICAL
     Route: 065
     Dates: start: 20180814, end: 20181023
  11. Bepanthen [Concomitant]
     Indication: Product used for unknown indication
     Dosage: UNK
     Dates: start: 20180817, end: 20180925
  12. DEXAMETHASONE [Concomitant]
     Active Substance: DEXAMETHASONE
     Indication: Product used for unknown indication
     Dosage: 8 MILLIGRAM, CYCLICAL
     Route: 065
     Dates: start: 20180814, end: 20180814

REACTIONS (2)
  - Nausea [Recovered/Resolved]
  - Ear pain [Recovered/Resolved]

NARRATIVE: CASE EVENT DATE: 20180911
